FAERS Safety Report 8879486 (Version 3)
Quarter: 2014Q1

REPORT INFORMATION
  Report Type: Report from Study
  Country: FR (occurrence: FR)
  Receive Date: 20121101
  Receipt Date: 20140325
  Transmission Date: 20141002
  Serious: Yes (Hospitalization)
  Sender: FDA-Public Use
  Company Number: FR-MPIJNJ-2012-06924

PATIENT
  Sex: 0

DRUGS (5)
  1. VELCADE [Suspect]
     Indication: PLASMA CELL MYELOMA
     Dosage: 2.1 MG, UNK
     Route: 065
     Dates: start: 20120904, end: 20120914
  2. DEXAMETHASONE [Suspect]
     Indication: PLASMA CELL MYELOMA
     Dosage: 20 MG, UNK
     Route: 065
     Dates: end: 20120915
  3. VALACICLOVIR [Concomitant]
     Dosage: UNK
     Dates: start: 20120904
  4. BACTRIM [Concomitant]
     Dosage: UNK
     Dates: start: 20120904
  5. MOPRAL                             /00661201/ [Concomitant]
     Dosage: UNK
     Dates: start: 20120904

REACTIONS (1)
  - Deep vein thrombosis [Recovered/Resolved]
